FAERS Safety Report 11439742 (Version 1)
Quarter: 2015Q3

REPORT INFORMATION
  Report Type: Spontaneous
  Country: US (occurrence: None)
  Receive Date: 20150831
  Receipt Date: 20150831
  Transmission Date: 20151125
  Serious: Yes (Hospitalization)
  Sender: FDA-Public Use
  Company Number: None

PATIENT
  Age: 69 Year
  Sex: Male
  Weight: 103.7 kg

DRUGS (2)
  1. SULFAMETHOXAZOLE/TRIMETHOPRIM [Suspect]
     Active Substance: SULFAMETHOXAZOLE\TRIMETHOPRIM
     Indication: CELLULITIS
     Route: 048
     Dates: start: 20150222, end: 20150228
  2. ENZALUTAMIDE [Suspect]
     Active Substance: ENZALUTAMIDE
     Indication: PANCREATIC CARCINOMA METASTATIC
     Route: 048
     Dates: start: 20141229, end: 20150302

REACTIONS (4)
  - Pyrexia [None]
  - Rash [None]
  - Pruritus [None]
  - Oedema peripheral [None]

NARRATIVE: CASE EVENT DATE: 20150228
